FAERS Safety Report 9539463 (Version 2)
Quarter: 2013Q4

REPORT INFORMATION
  Report Type: Spontaneous
  Country: US (occurrence: US)
  Receive Date: 20130920
  Receipt Date: 20131021
  Transmission Date: 20140711
  Serious: Yes (Life-Threatening, Hospitalization, Other)
  Sender: FDA-Public Use
  Company Number: US-GILEAD-2013-0083766

PATIENT
  Sex: Female

DRUGS (1)
  1. LETAIRIS [Suspect]
     Indication: PRODUCT USED FOR UNKNOWN INDICATION
     Dosage: 5 MG, QD
     Dates: start: 20130712

REACTIONS (6)
  - Respiratory arrest [Unknown]
  - Respiratory distress [Unknown]
  - Amnesia [Unknown]
  - Blood glucose decreased [Unknown]
  - Unevaluable event [Unknown]
  - Fatigue [Unknown]
